FAERS Safety Report 23859922 (Version 2)
Quarter: 2025Q1

REPORT INFORMATION
  Report Type: Spontaneous
  Country: US (occurrence: US)
  Receive Date: 20240515
  Receipt Date: 20250108
  Transmission Date: 20250408
  Serious: No
  Sender: SANOFI AVENTIS
  Company Number: US-SA-SAC20240508000112

PATIENT
  Age: 66 Year
  Sex: Male
  Weight: 97.52 kg

DRUGS (11)
  1. DUPIXENT [Suspect]
     Active Substance: DUPILUMAB
     Indication: Dermatitis atopic
     Dosage: 300 MG, QOW
     Route: 058
     Dates: start: 202308
  2. DUPIXENT [Suspect]
     Active Substance: DUPILUMAB
     Indication: Eczema
  3. CLOBETASOL [Concomitant]
     Active Substance: CLOBETASOL
  4. LUMIFY [Concomitant]
     Active Substance: BRIMONIDINE TARTRATE
  5. NIACINAMIDE [Concomitant]
     Active Substance: NIACINAMIDE
  6. LYSINE [Concomitant]
     Active Substance: LYSINE
  7. VITAMINS [Concomitant]
     Active Substance: VITAMINS
  8. OMEPRAZOLE [Concomitant]
     Active Substance: OMEPRAZOLE
  9. VALACYCLOVIR [Concomitant]
     Active Substance: VALACYCLOVIR HYDROCHLORIDE
  10. ACETAMINOPHEN\HYDROCODONE [Concomitant]
     Active Substance: ACETAMINOPHEN\HYDROCODONE
  11. OLOPATADINE HYDROCHLORIDE [Concomitant]
     Active Substance: OLOPATADINE HYDROCHLORIDE

REACTIONS (9)
  - Eyelid irritation [Unknown]
  - Ocular hyperaemia [Not Recovered/Not Resolved]
  - Toothache [Not Recovered/Not Resolved]
  - Eye irritation [Unknown]
  - Arthralgia [Not Recovered/Not Resolved]
  - Dermatitis atopic [Unknown]
  - Pruritus [Not Recovered/Not Resolved]
  - Accidental exposure to product [Unknown]
  - Exposure via skin contact [Unknown]

NARRATIVE: CASE EVENT DATE: 20241001
